FAERS Safety Report 24393818 (Version 1)
Quarter: 2024Q4

REPORT INFORMATION
  Report Type: Report from Study
  Country: AU (occurrence: AU)
  Receive Date: 20241003
  Receipt Date: 20241003
  Transmission Date: 20250115
  Serious: No
  Sender: ROCHE
  Company Number: AU-ROCHE-10000096726

PATIENT
  Age: 35 Year
  Sex: Male

DRUGS (9)
  1. OCREVUS [Suspect]
     Active Substance: OCRELIZUMAB
     Indication: Multiple sclerosis
     Route: 042
  2. LYRICA [Concomitant]
     Active Substance: PREGABALIN
     Route: 048
  3. LYRICA [Concomitant]
     Active Substance: PREGABALIN
     Route: 048
  4. LYRICA [Concomitant]
     Active Substance: PREGABALIN
     Route: 048
  5. LYRICA [Concomitant]
     Active Substance: PREGABALIN
     Route: 048
  6. BACLOFEN [Concomitant]
     Active Substance: BACLOFEN
     Route: 048
  7. CHOLECALCIFEROL [Concomitant]
     Active Substance: CHOLECALCIFEROL
     Dosage: DOSE: 25 MCG?DOSE: 4 TABLETS DAILY
  8. BUDESONIDE [Concomitant]
     Active Substance: BUDESONIDE
     Dosage: 100MCG PER DOSE
  9. FORMOTEROL [Concomitant]
     Active Substance: FORMOTEROL
     Dosage: 3MCG PER DOSE?SYMBICORT RAPIHALER 100/3 METERED DOSE INHALER) 120 DOSE (100 MCG/3 MCG (EQUIV. 80 MCG

REACTIONS (1)
  - Influenza [Recovered/Resolved]

NARRATIVE: CASE EVENT DATE: 20240601
